FAERS Safety Report 5119191-2 (Version None)
Quarter: 2006Q4

REPORT INFORMATION
  Report Type: 
  Country: None (occurrence: None)
  Receive Date: 20061003
  Receipt Date: 20060922
  Transmission Date: 20070319
  Serious: Yes (Other)
  Sender: FDA-Public Use
  Company Number: CA-JNJFOC-20060905392

PATIENT
  Age: 56 Year
  Sex: Female

DRUGS (4)
  1. REMICADE [Suspect]
     Route: 042
     Dates: start: 19990101
  2. REMICADE [Suspect]
     Route: 042
     Dates: start: 19990101
  3. REMICADE [Suspect]
     Route: 042
     Dates: start: 19990101
  4. REMICADE [Suspect]
     Indication: PSORIATIC ARTHROPATHY
     Dosage: 36 DOSES ON UNKNOWN DATES
     Route: 042
     Dates: start: 19990101

REACTIONS (2)
  - PSORIASIS [None]
  - TOOTH INFECTION [None]
